FAERS Safety Report 18622521 (Version 1)
Quarter: 2020Q4

REPORT INFORMATION
  Report Type: Spontaneous
  Country: US (occurrence: US)
  Receive Date: 20201215
  Receipt Date: 20201215
  Transmission Date: 20210114
  Serious: Yes (Hospitalization)
  Sender: FDA-Public Use
  Company Number: None

PATIENT
  Sex: Male

DRUGS (16)
  1. AMLODIPINE [Concomitant]
     Active Substance: AMLODIPINE BESYLATE
  2. RETACRIT [Suspect]
     Active Substance: EPOETIN ALFA-EPBX
     Indication: ANAEMIA
     Route: 058
     Dates: start: 20200901
  3. CARVEDILOL. [Concomitant]
     Active Substance: CARVEDILOL
  4. CEFDINIR. [Concomitant]
     Active Substance: CEFDINIR
  5. CIPROFLOX/\CN [Concomitant]
     Active Substance: CIPROFLOXACIN
  6. TORSEMIDE. [Concomitant]
     Active Substance: TORSEMIDE
  7. DILTIAZEM. [Concomitant]
     Active Substance: DILTIAZEM
  8. HYDRALAZINE [Concomitant]
     Active Substance: HYDRALAZINE HYDROCHLORIDE
  9. LABETALOL [Concomitant]
     Active Substance: LABETALOL\LABETALOL HYDROCHLORIDE
  10. MINOXIDIL. [Concomitant]
     Active Substance: MINOXIDIL
  11. ISOSORB DIN [Concomitant]
     Active Substance: ISOSORBIDE DINITRATE
  12. FOLIVANE-F [Concomitant]
     Active Substance: IRON\VITAMINS
  13. ASPIRIN. [Concomitant]
     Active Substance: ASPIRIN
  14. ATORVASTATIN [Concomitant]
     Active Substance: ATORVASTATIN
  15. APAP/CODEINE [Concomitant]
     Active Substance: ACETAMINOPHEN\CODEINE PHOSPHATE
  16. TAMSULOSIN [Concomitant]
     Active Substance: TAMSULOSIN

REACTIONS (1)
  - Transplant [None]
